APPROVED DRUG PRODUCT: PANTOPRAZOLE SODIUM
Active Ingredient: PANTOPRAZOLE SODIUM
Strength: EQ 40MG BASE/VIAL
Dosage Form/Route: INJECTABLE;INTRAVENOUS
Application: A215074 | Product #001 | TE Code: AP
Applicant: DEVA HOLDING AS
Approved: May 16, 2025 | RLD: No | RS: No | Type: RX